FAERS Safety Report 18640000 (Version 1)
Quarter: 2020Q4

REPORT INFORMATION
  Report Type: Spontaneous
  Country: US (occurrence: US)
  Receive Date: 20201220
  Receipt Date: 20201220
  Transmission Date: 20210114
  Serious: No
  Sender: FDA-Public Use
  Company Number: US-PACIRA-202000332

PATIENT
  Age: 62 Year
  Sex: Female

DRUGS (2)
  1. NAROPIN [Suspect]
     Active Substance: ROPIVACAINE HYDROCHLORIDE
     Indication: SURGERY
     Dosage: 15 ML ADMIXED WITH 10 ML (133 MG) OF EXPAREL
     Route: 065
  2. EXPAREL [Suspect]
     Active Substance: BUPIVACAINE
     Indication: SURGERY
     Dosage: 10 ML (133 MG) ADMIXED WITH 15 ML OF 0.5% ROPIVACAINE (NAROPIN)
     Route: 065

REACTIONS (2)
  - No adverse event [Unknown]
  - Labelled drug-drug interaction medication error [Unknown]
